FAERS Safety Report 23358091 (Version 5)
Quarter: 2025Q1

REPORT INFORMATION
  Report Type: Spontaneous
  Country: IT (occurrence: IT)
  Receive Date: 20240102
  Receipt Date: 20250206
  Transmission Date: 20250409
  Serious: Yes (Death, Life-Threatening, Hospitalization, Other)
  Sender: TAKEDA
  Company Number: IT-HIKMA PHARMACEUTICALS-IT-H14001-23-68231

PATIENT
  Age: 52 Year
  Sex: Female

DRUGS (8)
  1. VELCADE [Suspect]
     Active Substance: BORTEZOMIB
     Indication: Plasma cell myeloma
  2. DEXAMETHASONE [Suspect]
     Active Substance: DEXAMETHASONE
     Indication: Plasma cell myeloma
  3. DARZALEX [Suspect]
     Active Substance: DARATUMUMAB
     Indication: Plasma cell myeloma
  4. THALIDOMIDE [Suspect]
     Active Substance: THALIDOMIDE
     Indication: Plasma cell myeloma
  5. ASPIRIN [Concomitant]
     Active Substance: ASPIRIN
     Indication: Prophylaxis
  6. TRANEXAMIC ACID [Concomitant]
     Active Substance: TRANEXAMIC ACID
     Indication: Coagulopathy
     Dosage: 1000 MILLIGRAM, TID
  7. TRANEXAMIC ACID [Concomitant]
     Active Substance: TRANEXAMIC ACID
     Indication: Haemorrhage
  8. VITAMIN K [Concomitant]
     Active Substance: PHYTONADIONE
     Indication: Product used for unknown indication

REACTIONS (13)
  - Haemorrhage intracranial [Fatal]
  - Pneumonia cytomegaloviral [Fatal]
  - Cytomegalovirus infection [Unknown]
  - Epistaxis [Unknown]
  - Pancytopenia [Unknown]
  - Plasma cell myeloma [Unknown]
  - Hepatic function abnormal [Unknown]
  - Coagulopathy [Unknown]
  - Factor VII deficiency [Unknown]
  - Plasma cell leukaemia [Unknown]
  - Interstitial lung disease [Unknown]
  - Acute respiratory distress syndrome [Unknown]
  - Cardiac failure congestive [Recovered/Resolved]
